FAERS Safety Report 7684160-5 (Version None)
Quarter: 2011Q3

REPORT INFORMATION
  Report Type: 
  Country: None (occurrence: None)
  Receive Date: 20110815
  Receipt Date: 20110805
  Transmission Date: 20111222
  Serious: Yes (Other)
  Sender: FDA-Public Use
  Company Number: US-BAYER-2011-069545

PATIENT
  Sex: Female

DRUGS (3)
  1. MIRENA [Suspect]
     Dosage: 20 MCG/24HR, CONT
     Route: 015
     Dates: start: 20110101
  2. MIRENA [Suspect]
     Dosage: 20 MCG/24HR, CONT
     Dates: start: 20050401, end: 20110501
  3. WATER PILL [Concomitant]

REACTIONS (4)
  - ABDOMINAL DISTENSION [None]
  - AMENORRHOEA [None]
  - OEDEMA PERIPHERAL [None]
  - WEIGHT INCREASED [None]
